FAERS Safety Report 9718918 (Version 1)
Quarter: 2013Q4

REPORT INFORMATION
  Report Type: Spontaneous
  Country: US (occurrence: None)
  Receive Date: 20131126
  Receipt Date: 20131126
  Transmission Date: 20140711
  Serious: Yes (Other)
  Sender: FDA-Public Use
  Company Number: GB-DEXPHARM-20131004

PATIENT
  Age: 52 Year
  Sex: Female

DRUGS (13)
  1. DIAZEPAM [Suspect]
     Dosage: 10 MG (MILLIGRAM(S) SEP. DOSAGES / INTERVALS : 3 IN 1 DAYS
  2. OMEPRAZOLE [Suspect]
     Dosage: 20 MG MILLIGRAM(S) SEP.DOSAGES / INTERVAL: 1 IN 1 DAYS
     Route: 048
     Dates: start: 20131028, end: 20131031
  3. AMTRIPTYLINE [Concomitant]
  4. DICLOFENAC [Concomitant]
  5. ERGOCALCIFEROL [Concomitant]
  6. FUROSEMIDE [Concomitant]
  7. HYDROCHLOROQUINE [Concomitant]
  8. MORPHINE PATCHES 50 MG PER HOUR [Concomitant]
  9. MORPHINE 40 MG TABLETS [Concomitant]
  10. OXYCODONE [Concomitant]
  11. PARACETAMOL [Concomitant]
  12. TEMAZEPAM [Concomitant]
  13. VITAMIN D [Concomitant]

REACTIONS (12)
  - Abnormal sleep-related event [None]
  - Vision blurred [None]
  - Convulsion [None]
  - Drug interaction [None]
  - Dry mouth [None]
  - Syncope [None]
  - Headache [None]
  - Lethargy [None]
  - Tremor [None]
  - Amnesia [None]
  - Sleep talking [None]
  - Fatigue [None]
